FAERS Safety Report 7670732 (Version 2)
Quarter: 2013Q1

REPORT INFORMATION
  Report Type: Spontaneous
  Country: CH (occurrence: CH)
  Receive Date: 20101116
  Receipt Date: 20130207
  Transmission Date: 20140127
  Serious: Yes (Hospitalization)
  Sender: FDA-Public Use
  Company Number: CH-JNJFOC-20101102280

PATIENT
  Age: 39 Year
  Sex: Female
  Weight: 118 kg

DRUGS (12)
  1. REMICADE [Suspect]
     Indication: JUVENILE IDIOPATHIC ARTHRITIS
     Dosage: PER APPLICATION
     Route: 042
     Dates: start: 20100727, end: 20100727
  2. PREDNISONE [Suspect]
     Indication: JUVENILE IDIOPATHIC ARTHRITIS
     Route: 065
     Dates: end: 201007
  3. PREDNISONE [Suspect]
     Indication: JUVENILE IDIOPATHIC ARTHRITIS
     Route: 065
     Dates: start: 201007
  4. METOJECT [Suspect]
     Indication: JUVENILE IDIOPATHIC ARTHRITIS
     Route: 065
     Dates: start: 200902
  5. ACTEMRA [Suspect]
     Indication: STILL^S DISEASE ADULT ONSET
     Dosage: PER APPLICATION
     Route: 042
     Dates: start: 200902, end: 20100727
  6. MABTHERA [Suspect]
     Indication: JUVENILE IDIOPATHIC ARTHRITIS
     Dosage: PER APPLICATION (2 APPLICATIONS)
     Route: 042
     Dates: start: 20071017, end: 20071101
  7. COLCHICINE [Concomitant]
     Route: 065
     Dates: start: 20071011, end: 20100701
  8. KEPPRA [Concomitant]
     Route: 065
  9. TORASEMIDE [Concomitant]
     Route: 065
  10. BELOC-ZOK [Concomitant]
     Route: 065
  11. NEXIUM [Concomitant]
     Route: 065
  12. ZALDIAR [Concomitant]
     Route: 065

REACTIONS (3)
  - Campylobacter gastroenteritis [Recovered/Resolved]
  - Hepatitis viral [Recovered/Resolved]
  - Off label use [Recovered/Resolved]
